FAERS Safety Report 12985832 (Version 2)
Quarter: 2016Q4

REPORT INFORMATION
  Report Type: Spontaneous
  Country: JP (occurrence: JP)
  Receive Date: 20161130
  Receipt Date: 20161220
  Transmission Date: 20170207
  Serious: Yes (Hospitalization, Other)
  Sender: FDA-Public Use
  Company Number: JP-009507513-1611JPN012918

PATIENT
  Age: 3 Year
  Sex: Female

DRUGS (2)
  1. DIAZOXIDE CAPSULES 25 MG MSD [Suspect]
     Active Substance: DIAZOXIDE
     Dosage: UNK
     Route: 048
  2. DIAZOXIDE CAPSULES 25 MG MSD [Suspect]
     Active Substance: DIAZOXIDE
     Dosage: 9 MG/KG, UNK
     Route: 048

REACTIONS (3)
  - Hospitalisation [Unknown]
  - Amylase decreased [Not Recovered/Not Resolved]
  - Lipase increased [Not Recovered/Not Resolved]

NARRATIVE: CASE EVENT DATE: 201611
